FAERS Safety Report 4744864-0 (Version None)
Quarter: 2005Q3

REPORT INFORMATION
  Report Type: 
  Country: None (occurrence: None)
  Receive Date: 20050815
  Receipt Date: 20050808
  Transmission Date: 20060218
  Serious: Yes (Other)
  Sender: FDA-Public Use
  Company Number: GB-GLAXOSMITHKLINE-B0390235A

PATIENT
  Age: 72 Year
  Sex: Female
  Weight: 73 kg

DRUGS (3)
  1. FLUTICASONE PROPIONATE [Suspect]
     Dosage: 800MCG AT NIGHT
     Route: 065
     Dates: start: 20040701, end: 20040703
  2. VERAPAMIL [Concomitant]
     Indication: ARRHYTHMIA
     Dosage: 40MG PER DAY
     Route: 048
  3. BRUFEN [Concomitant]
     Route: 048

REACTIONS (2)
  - HEADACHE [None]
  - HYPERTENSION [None]
